FAERS Safety Report 6315748-1 (Version None)
Quarter: 2009Q3

REPORT INFORMATION
  Report Type: 
  Country: None (occurrence: None)
  Receive Date: 20090819
  Receipt Date: 20090429
  Transmission Date: 20100115
  Serious: No
  Sender: FDA-Public Use
  Company Number: US-BAUSCH-2009BL002034

PATIENT
  Age: 71 Year
  Sex: Male

DRUGS (2)
  1. CROMOLYN SODIUM [Suspect]
     Indication: SNEEZING
     Route: 045
     Dates: start: 20070101
  2. CROMOLYN SODIUM [Suspect]
     Indication: SEASONAL ALLERGY
     Route: 045
     Dates: start: 20070101

REACTIONS (1)
  - DYSGEUSIA [None]
